FAERS Safety Report 6301840-4 (Version None)
Quarter: 2009Q3

REPORT INFORMATION
  Report Type: 
  Country: None (occurrence: None)
  Receive Date: 20090807
  Receipt Date: 20090708
  Transmission Date: 20100115
  Serious: No
  Sender: FDA-Public Use
  Company Number: IE-MEDIMMUNE-MEDI-0008317

PATIENT
  Sex: Male
  Weight: 6.25 kg

DRUGS (1)
  1. SYNAGIS [Suspect]
     Route: 030
     Dates: start: 20081009, end: 20090306

REACTIONS (8)
  - BRONCHIOLITIS [None]
  - COUGH [None]
  - INCREASED UPPER AIRWAY SECRETION [None]
  - PYREXIA [None]
  - RHINORRHOEA [None]
  - RHONCHI [None]
  - VOMITING [None]
  - WHEEZING [None]
